FAERS Safety Report 11790594 (Version 1)
Quarter: 2015Q4

REPORT INFORMATION
  Report Type: Spontaneous
  Country: US (occurrence: US)
  Receive Date: 20151201
  Receipt Date: 20151201
  Transmission Date: 20160305
  Serious: Yes (Hospitalization)
  Sender: FDA-Public Use
  Company Number: US-PFIZER INC-2015408698

PATIENT
  Age: 64 Year
  Sex: Female

DRUGS (2)
  1. AROMASIN [Suspect]
     Active Substance: EXEMESTANE
     Indication: BREAST CANCER
     Dosage: UNK
     Dates: start: 20151101
  2. AFINITOR [Suspect]
     Active Substance: EVEROLIMUS
     Indication: BREAST CANCER
     Dosage: UNK
     Dates: end: 20151109

REACTIONS (10)
  - Weight decreased [Unknown]
  - Gait disturbance [Unknown]
  - Diarrhoea [Unknown]
  - Breast cancer [Unknown]
  - Influenza like illness [Unknown]
  - Fatigue [Unknown]
  - Disease progression [Unknown]
  - Pyrexia [Unknown]
  - Platelet count decreased [Unknown]
  - Dyspnoea [Unknown]
